FAERS Safety Report 9648307 (Version 1)
Quarter: 2013Q4

REPORT INFORMATION
  Report Type: Spontaneous
  Country: IE (occurrence: IE)
  Receive Date: 20131028
  Receipt Date: 20131028
  Transmission Date: 20140711
  Serious: Yes (Hospitalization, Disabling)
  Sender: FDA-Public Use
  Company Number: IE-UCBSA-101127

PATIENT
  Age: 37 Year
  Sex: Male

DRUGS (2)
  1. VIMPAT [Suspect]
     Indication: CONVULSION
     Dates: start: 20121005, end: 20121005
  2. EPANUTIN [Concomitant]

REACTIONS (2)
  - Convulsion [Recovered/Resolved]
  - Catatonia [Recovered/Resolved]
